FAERS Safety Report 13748285 (Version 2)
Quarter: 2017Q3

REPORT INFORMATION
  Report Type: Spontaneous
  Country: US (occurrence: US)
  Receive Date: 20170713
  Receipt Date: 20170925
  Transmission Date: 20171127
  Serious: No
  Sender: FDA-Public Use
  Company Number: US-PFIZER INC-2017297176

PATIENT
  Sex: Female

DRUGS (1)
  1. METHOTREXATE SODIUM. [Suspect]
     Active Substance: METHOTREXATE SODIUM
     Dosage: 20 MG, WEEKLY

REACTIONS (13)
  - Tooth fracture [Unknown]
  - Joint range of motion decreased [Not Recovered/Not Resolved]
  - Dry eye [Not Recovered/Not Resolved]
  - Nodule [Not Recovered/Not Resolved]
  - Joint crepitation [Not Recovered/Not Resolved]
  - Rash [Not Recovered/Not Resolved]
  - Joint contracture [Not Recovered/Not Resolved]
  - Red blood cell sedimentation rate increased [Unknown]
  - Fear of injection [Not Recovered/Not Resolved]
  - Musculoskeletal stiffness [Unknown]
  - Dry mouth [Not Recovered/Not Resolved]
  - Synovitis [Not Recovered/Not Resolved]
  - Arthritis [Not Recovered/Not Resolved]
